FAERS Safety Report 6253907-7 (Version None)
Quarter: 2009Q2

REPORT INFORMATION
  Report Type: 
  Country: None (occurrence: None)
  Receive Date: 20090630
  Receipt Date: 20090630
  Transmission Date: 20091009
  Serious: Yes (Other)
  Sender: FDA-Public Use
  Company Number: None

PATIENT
  Age: 57 Year
  Sex: Female
  Weight: 58.9676 kg

DRUGS (1)
  1. RYZOLT [Suspect]
     Indication: BACK PAIN
     Dosage: ONE 100 MG TABLET EVERY DAY PO
     Route: 048
     Dates: start: 20090624, end: 20090624

REACTIONS (4)
  - DIZZINESS [None]
  - NAUSEA [None]
  - SOMNOLENCE [None]
  - VOMITING [None]
